FAERS Safety Report 5042096-2 (Version None)
Quarter: 2006Q2

REPORT INFORMATION
  Report Type: 
  Country: None (occurrence: None)
  Receive Date: 20060627
  Receipt Date: 20060609
  Transmission Date: 20061013
  Serious: No
  Sender: FDA-Public Use
  Company Number: US200606002982

PATIENT
  Sex: Female

DRUGS (1)
  1. CYMBALTA [Suspect]
     Dosage: 60 MG
     Dates: start: 20060502

REACTIONS (1)
  - TRANSAMINASES INCREASED [None]
